APPROVED DRUG PRODUCT: DILTIAZEM HYDROCHLORIDE
Active Ingredient: DILTIAZEM HYDROCHLORIDE
Strength: 60MG
Dosage Form/Route: TABLET;ORAL
Application: A211596 | Product #002
Applicant: EDENBRIDGE PHARMACEUTICALS LLC
Approved: Nov 18, 2019 | RLD: No | RS: No | Type: DISCN